FAERS Safety Report 19499200 (Version 1)
Quarter: 2021Q3

REPORT INFORMATION
  Report Type: Spontaneous
  Country: US (occurrence: US)
  Receive Date: 20210706
  Receipt Date: 20210706
  Transmission Date: 20211014
  Serious: No
  Sender: FDA-Public Use
  Company Number: US-PFIZER INC-2021777128

PATIENT
  Age: 67 Year
  Sex: Male

DRUGS (1)
  1. LYRICA [Suspect]
     Active Substance: PREGABALIN
     Dosage: UNK

REACTIONS (4)
  - Nervous system disorder [Unknown]
  - Withdrawal syndrome [Unknown]
  - Insomnia [Unknown]
  - Gait disturbance [Unknown]
